FAERS Safety Report 25442411 (Version 4)
Quarter: 2025Q3

REPORT INFORMATION
  Report Type: Report from Study
  Country: US (occurrence: US)
  Receive Date: 20250617
  Receipt Date: 20250804
  Transmission Date: 20251020
  Serious: No
  Sender: MALLINCKRODT
  Company Number: US-MALLINCKRODT-MNK202502617

PATIENT
  Age: 45 Year
  Sex: Female
  Weight: 160 kg

DRUGS (4)
  1. CORTICOTROPIN [Suspect]
     Active Substance: CORTICOTROPIN
     Indication: Haematuria
     Dates: start: 20250422
  2. CORTICOTROPIN [Suspect]
     Active Substance: CORTICOTROPIN
     Dates: start: 20250429
  3. METOPROLOL [Concomitant]
     Active Substance: METOPROLOL
  4. INDAPAMIDE [Concomitant]
     Active Substance: INDAPAMIDE

REACTIONS (3)
  - Laboratory test abnormal [Unknown]
  - Emotional disorder [Unknown]
  - Peripheral swelling [Unknown]

NARRATIVE: CASE EVENT DATE: 20250101
